FAERS Safety Report 5598218-8 (Version None)
Quarter: 2008Q1

REPORT INFORMATION
  Report Type: 
  Country: None (occurrence: None)
  Receive Date: 20080117
  Receipt Date: 20080117
  Transmission Date: 20080703
  Serious: Yes (Other)
  Sender: FDA-Public Use
  Company Number: None

PATIENT
  Sex: Female
  Weight: 103.1 kg

DRUGS (3)
  1. ENALAPRIL MALEATE [Suspect]
  2. FUROSEMIDE [Suspect]
  3. RAMIPRIL [Suspect]

REACTIONS (2)
  - ANGIOEDEMA [None]
  - DROOLING [None]
